FAERS Safety Report 9197740 (Version 3)
Quarter: 2013Q4

REPORT INFORMATION
  Report Type: Spontaneous
  Country: US (occurrence: US)
  Receive Date: 20130328
  Receipt Date: 20131001
  Transmission Date: 20140711
  Serious: Yes (Hospitalization)
  Sender: FDA-Public Use
  Company Number: US-VERTEX PHARMACEUTICALS INC.-2013-004196

PATIENT
  Age: 13 Year
  Sex: Female
  Weight: 45 kg

DRUGS (14)
  1. KALYDECO [Suspect]
     Indication: CYSTIC FIBROSIS
     Dosage: 150 MG, BID
     Route: 048
     Dates: start: 20120314
  2. ALBUTEROL [Concomitant]
     Dosage: 2.5 MG, BID NEBULIZER
  3. SYMBICORT [Concomitant]
     Dosage: 80/4.5 MCG, 2 PUFFS INHALED
  4. PULMOZYME [Concomitant]
     Dosage: 2.5 MG, BID NEBULIZER
  5. CREON [Concomitant]
     Dosage: 24000 UNITS/CAPSULE X 3 BEFORE MEALS 2 BEFORE SNACKS
  6. ADEK [Concomitant]
  7. AQUADEKS [Concomitant]
     Dosage: 2.5 ML, BID
     Route: 048
  8. PROTONIX [Concomitant]
     Indication: GASTROOESOPHAGEAL REFLUX DISEASE
     Dosage: 20 MG, QD
     Route: 048
  9. FERROUS SULFATE [Concomitant]
     Dosage: 325 MG, QD
     Route: 048
  10. ACETAMINOPHEN [Concomitant]
     Dosage: 500 MG, EVERY 4 HOURS PRN
     Route: 048
  11. IBUPROFEN [Concomitant]
     Dosage: 400 MG EVERY 4 HRS PRN
     Route: 048
  12. VITAMIN B COMPLEX [Concomitant]
     Dosage: UNK, QD
  13. MULTIVITAMIN [Concomitant]
     Dosage: UNK, QD
  14. PREVACID [Concomitant]
     Dosage: 15 MG, AM
     Route: 048

REACTIONS (8)
  - Pseudomonas infection [Unknown]
  - Infective pulmonary exacerbation of cystic fibrosis [Not Recovered/Not Resolved]
  - Infective pulmonary exacerbation of cystic fibrosis [Unknown]
  - Eye pain [Unknown]
  - Photophobia [Unknown]
  - Dyspnoea [Unknown]
  - Weight gain poor [Unknown]
  - Headache [Unknown]
